FAERS Safety Report 17434214 (Version 1)
Quarter: 2020Q1

REPORT INFORMATION
  Report Type: Spontaneous
  Country: US (occurrence: US)
  Receive Date: 20200219
  Receipt Date: 20200219
  Transmission Date: 20200409
  Serious: Yes (Other)
  Sender: FDA-Public Use
  Company Number: US-ELI_LILLY_AND_COMPANY-US202002004203

PATIENT
  Age: 48 Year
  Sex: Male

DRUGS (2)
  1. HUMALOG MIX75/25 [Suspect]
     Active Substance: INSULIN LISPRO
     Dosage: 40 DOSAGE FORM, PRN (MEAL TIMES)
     Route: 058
  2. HUMALOG MIX75/25 [Suspect]
     Active Substance: INSULIN LISPRO
     Indication: TYPE 2 DIABETES MELLITUS
     Dosage: 40 DOSAGE FORM, PRN (MEAL TIMES)
     Route: 058

REACTIONS (5)
  - Cerebrovascular accident [Recovering/Resolving]
  - Incorrect dose administered [Unknown]
  - Blood glucose increased [Unknown]
  - Flank pain [Unknown]
  - Renal pain [Unknown]

NARRATIVE: CASE EVENT DATE: 2014
